FAERS Safety Report 19614425 (Version 1)
Quarter: 2021Q3

REPORT INFORMATION
  Report Type: Spontaneous
  Country: US (occurrence: US)
  Receive Date: 20210727
  Receipt Date: 20210727
  Transmission Date: 20211014
  Serious: No
  Sender: FDA-Public Use
  Company Number: None

PATIENT
  Age: 33 Year
  Sex: Female
  Weight: 54 kg

DRUGS (3)
  1. MIRENA [Concomitant]
     Active Substance: LEVONORGESTREL
  2. NEUTROGENA BEACH DEFENSE WATER PLUS SUN PROTECTION SUNSCREEN BROAD SPECTRUM SPF 50 [Suspect]
     Active Substance: AVOBENZONE\HOMOSALATE\OCTISALATE\OCTOCRYLENE
     Indication: SUNBURN
     Dosage: ?          OTHER STRENGTH:SPF;?
     Route: 061
     Dates: end: 20210727
  3. NEUTROGENA ULTRA SHEER BODY MIST SUNSCREEN BROAD SPECTRUM SPF 100 PLUS [Suspect]
     Active Substance: AVOBENZONE\HOMOSALATE\OCTISALATE\OCTOCRYLENE\OXYBENZONE
     Indication: SUNBURN
     Route: 061
     Dates: end: 20210727

REACTIONS (3)
  - Recalled product administered [None]
  - Product contamination [None]
  - Urticaria [None]

NARRATIVE: CASE EVENT DATE: 20200610
